FAERS Safety Report 7822290-5 (Version None)
Quarter: 2011Q4

REPORT INFORMATION
  Report Type: 
  Country: None (occurrence: None)
  Receive Date: 20111018
  Receipt Date: 20100907
  Transmission Date: 20120403
  Serious: Yes (Other)
  Sender: FDA-Public Use
  Company Number: US-ASTRAZENECA-2010SE41952

PATIENT
  Age: 61 Year
  Sex: Male

DRUGS (1)
  1. SYMBICORT [Suspect]
     Indication: ASTHMA
     Dosage: 320 MCG, TWO PUFFS
     Route: 055
     Dates: start: 20100101, end: 20100101

REACTIONS (1)
  - SUPRAVENTRICULAR TACHYCARDIA [None]
